FAERS Safety Report 8164028-0 (Version None)
Quarter: 2012Q1

REPORT INFORMATION
  Report Type: 
  Country: None (occurrence: None)
  Receive Date: 20120224
  Receipt Date: 20120214
  Transmission Date: 20120608
  Serious: Yes (Hospitalization, Other)
  Sender: FDA-Public Use
  Company Number: PHHY2012IN005951

PATIENT
  Age: 75 Year
  Sex: Male

DRUGS (1)
  1. ZOLEDRONOC ACID [Suspect]
     Route: 042

REACTIONS (3)
  - HIP DEFORMITY [None]
  - WEIGHT BEARING DIFFICULTY [None]
  - FRACTURE [None]
